FAERS Safety Report 16277720 (Version 1)
Quarter: 2019Q2

REPORT INFORMATION
  Report Type: Spontaneous
  Country: CA (occurrence: CA)
  Receive Date: 20190506
  Receipt Date: 20190506
  Transmission Date: 20190711
  Serious: Yes (Other)
  Sender: FDA-Public Use
  Company Number: CA-AMGEN-CANSP2019071660

PATIENT
  Age: 50 Year

DRUGS (3)
  1. AIMOVIG [Suspect]
     Active Substance: ERENUMAB-AOOE
     Dosage: 140 MILLIGRAM
     Route: 065
     Dates: start: 20190122
  2. AIMOVIG [Suspect]
     Active Substance: ERENUMAB-AOOE
     Indication: MIGRAINE
     Dosage: 70 MILLIGRAM
     Route: 065
     Dates: start: 20181229
  3. AIMOVIG [Suspect]
     Active Substance: ERENUMAB-AOOE
     Dosage: 140 MILLIGRAM
     Route: 065
     Dates: start: 20190222

REACTIONS (19)
  - Wheezing [Unknown]
  - Fatigue [Unknown]
  - Dry eye [Unknown]
  - Asthma [Unknown]
  - Palatal swelling [Unknown]
  - Pruritus generalised [Unknown]
  - Deafness neurosensory [Unknown]
  - Scintillating scotoma [Unknown]
  - Swelling face [Unknown]
  - Peripheral swelling [Unknown]
  - Tinnitus [Unknown]
  - Eye pain [Unknown]
  - Migraine with aura [Unknown]
  - Hypersensitivity [Unknown]
  - Ocular hyperaemia [Unknown]
  - Nasopharyngitis [Unknown]
  - Nausea [Unknown]
  - Dyspnoea [Unknown]
  - Depression [Recovered/Resolved]

NARRATIVE: CASE EVENT DATE: 20190414
